FAERS Safety Report 7706793-X (Version None)
Quarter: 2011Q3

REPORT INFORMATION
  Report Type: 
  Country: None (occurrence: None)
  Receive Date: 20110824
  Receipt Date: 20110816
  Transmission Date: 20111222
  Serious: Yes (Hospitalization)
  Sender: FDA-Public Use
  Company Number: US-MERCK-1106USA03183

PATIENT
  Age: 65 Year
  Sex: Male
  Weight: 85 kg

DRUGS (1)
  1. ZOCOR [Suspect]
     Indication: BLOOD CHOLESTEROL INCREASED
     Route: 048
     Dates: start: 20110501, end: 20110530

REACTIONS (12)
  - CLOSTRIDIUM DIFFICILE COLITIS [None]
  - ORTHOSTATIC HYPOTENSION [None]
  - GOUT [None]
  - RHABDOMYOLYSIS [None]
  - NEPHROGENIC ANAEMIA [None]
  - NEPHROTIC SYNDROME [None]
  - BLOOD IRON DECREASED [None]
  - RENAL FAILURE ACUTE [None]
  - OBSTRUCTIVE UROPATHY [None]
  - GENERALISED OEDEMA [None]
  - HYPERTENSION [None]
  - RENAL TUBULAR NECROSIS [None]
